FAERS Safety Report 20491925 (Version 4)
Quarter: 2024Q2

REPORT INFORMATION
  Report Type: Spontaneous
  Country: ZA (occurrence: ZA)
  Receive Date: 20220218
  Receipt Date: 20240419
  Transmission Date: 20240716
  Serious: Yes (Other)
  Sender: FDA-Public Use
  Company Number: ZA-PFIZER INC-202101251772

PATIENT
  Age: 64 Year
  Sex: Male

DRUGS (6)
  1. SULFASALAZINE [Suspect]
     Active Substance: SULFASALAZINE
     Dosage: 1000 MG, 2X/DAY
     Dates: start: 20110101
  2. ACTEMRA [Concomitant]
     Active Substance: TOCILIZUMAB
     Dosage: 600 MG, MONTHLY
     Dates: start: 20140730
  3. METHOTREXATE [Concomitant]
     Active Substance: METHOTREXATE
     Dosage: 25 MG, WEEKLY
     Dates: start: 20090101, end: 20140101
  4. ARAVA [Concomitant]
     Active Substance: LEFLUNOMIDE
     Dosage: 20 MG, DAILY
     Dates: start: 20121201, end: 20140101
  5. CHLOROQUINE [Concomitant]
     Active Substance: CHLOROQUINE
     Dosage: 200 MG, DAILY
     Dates: start: 20120101, end: 20121201
  6. ORENCIA [Concomitant]
     Active Substance: ABATACEPT
     Dosage: 750 MG, MONTHLY
     Dates: start: 20140430

REACTIONS (18)
  - Diabetes mellitus [Unknown]
  - Myelosuppression [Unknown]
  - C-reactive protein increased [Unknown]
  - Pleural fibrosis [Unknown]
  - Pleural effusion [Unknown]
  - Blood creatinine increased [Unknown]
  - Glomerular filtration rate decreased [Unknown]
  - Monocyte count increased [Unknown]
  - Lymphocyte count decreased [Unknown]
  - Blood urea increased [Unknown]
  - Blood glucose increased [Unknown]
  - Glycosylated haemoglobin increased [Unknown]
  - Carbon dioxide decreased [Unknown]
  - Low density lipoprotein increased [Unknown]
  - Glycosylated haemoglobin increased [Unknown]
  - Platelet count decreased [Unknown]
  - Chest X-ray abnormal [Unknown]
  - Haemoglobin decreased [Unknown]

NARRATIVE: CASE EVENT DATE: 20131001
